FAERS Safety Report 25684650 (Version 1)
Quarter: 2025Q3

REPORT INFORMATION
  Report Type: Spontaneous
  Country: EU (occurrence: EU)
  Receive Date: 20250815
  Receipt Date: 20250815
  Transmission Date: 20251021
  Serious: Yes (Other)
  Sender: AMGEN
  Company Number: None

PATIENT
  Age: 59 Year
  Sex: Male
  Weight: 82 kg

DRUGS (5)
  1. ADALIMUMAB [Suspect]
     Active Substance: ADALIMUMAB
     Indication: Rheumatoid arthritis
     Dosage: 1X 2 WEEKS 0.8MG
     Route: 065
     Dates: start: 20190101
  2. DAPAGLIFLOZIN [Concomitant]
     Active Substance: DAPAGLIFLOZIN
     Route: 048
  3. SPIRONOLACTONE [Concomitant]
     Active Substance: SPIRONOLACTONE
     Route: 048
  4. SACUBITRIL\VALSARTAN [Concomitant]
     Active Substance: SACUBITRIL\VALSARTAN
     Route: 048
  5. METOPROLOL [Concomitant]
     Active Substance: METOPROLOL
     Route: 048

REACTIONS (2)
  - Cardiac failure [Not Recovered/Not Resolved]
  - Product substitution issue [Unknown]
